FAERS Safety Report 8056038-9 (Version None)
Quarter: 2012Q1

REPORT INFORMATION
  Report Type: 
  Country: None (occurrence: None)
  Receive Date: 20120119
  Receipt Date: 20120110
  Transmission Date: 20120608
  Serious: Yes (Other)
  Sender: FDA-Public Use
  Company Number: US-JNJFOC-20120104169

PATIENT
  Sex: Male

DRUGS (3)
  1. AZATHIOPRINE [Concomitant]
     Indication: CROHN'S DISEASE
     Route: 048
     Dates: start: 20111201
  2. REMICADE [Suspect]
     Indication: CROHN'S DISEASE
     Dosage: 2ND INFUSION
     Route: 042
     Dates: start: 20111224, end: 20120101
  3. REMICADE [Suspect]
     Route: 042
     Dates: start: 20111201

REACTIONS (6)
  - FATIGUE [None]
  - ASTHENIA [None]
  - MALAISE [None]
  - ARTHRALGIA [None]
  - FEELING ABNORMAL [None]
  - PARAESTHESIA [None]
